FAERS Safety Report 7903598-1 (Version None)
Quarter: 2011Q4

REPORT INFORMATION
  Report Type: 
  Country: None (occurrence: None)
  Receive Date: 20111109
  Receipt Date: 20111027
  Transmission Date: 20120403
  Serious: Yes (Other)
  Sender: FDA-Public Use
  Company Number: US-ELI_LILLY_AND_COMPANY-US201109008074

PATIENT
  Sex: Female

DRUGS (13)
  1. ZYPREXA [Concomitant]
  2. OXYGEN [Concomitant]
  3. REQUIP [Concomitant]
  4. RITALIN [Concomitant]
  5. FORTEO [Suspect]
     Indication: OSTEOPOROSIS
     Dosage: 20 UG, QD
     Route: 065
     Dates: start: 20110812, end: 20110826
  6. CYMBALTA [Concomitant]
  7. PROMETHAZINE [Concomitant]
  8. OSCAL                              /00108001/ [Concomitant]
  9. METHADONE HCL [Concomitant]
  10. MUSCLE RELAXANTS [Concomitant]
  11. VALIUM [Concomitant]
  12. PRENATAL VITAMINS                  /01549301/ [Concomitant]
  13. ASPIRIN [Concomitant]

REACTIONS (5)
  - STERNAL FRACTURE [None]
  - MOBILITY DECREASED [None]
  - HIP FRACTURE [None]
  - PAIN IN EXTREMITY [None]
  - INTENTIONAL DRUG MISUSE [None]
